FAERS Safety Report 15309428 (Version 2)
Quarter: 2018Q3

REPORT INFORMATION
  Report Type: Spontaneous
  Country: DE (occurrence: DE)
  Receive Date: 20180823
  Receipt Date: 20180828
  Transmission Date: 20181010
  Serious: Yes (Other)
  Sender: FDA-Public Use
  Company Number: DE-ROCHE-2173982

PATIENT
  Sex: Female
  Weight: 52 kg

DRUGS (3)
  1. KEVATRIL [Concomitant]
     Active Substance: GRANISETRON HYDROCHLORIDE
     Indication: PREMEDICATION
     Dosage: PRIOR TO THERAPY
     Route: 065
  2. MEDOXA [Concomitant]
     Active Substance: OXALIPLATIN
     Indication: ADENOCARCINOMA OF COLON
     Dosage: LAST ADMINISTRATION BEFORE ONSET: 11/DEC/2017
     Route: 042
     Dates: start: 20171211, end: 20171225
  3. CAPECITABINE. [Suspect]
     Active Substance: CAPECITABINE
     Indication: ADENOCARCINOMA OF COLON
     Dosage: LAST ADMINISTRATION BEFORE ONSET: 25/DEC/2017
     Route: 048
     Dates: start: 20171211

REACTIONS (2)
  - General physical health deterioration [Recovered/Resolved]
  - Infection [Recovered/Resolved]

NARRATIVE: CASE EVENT DATE: 20171226
